FAERS Safety Report 11175968 (Version 4)
Quarter: 2015Q2

REPORT INFORMATION
  Report Type: Report from Study
  Country: US (occurrence: US)
  Receive Date: 20150609
  Receipt Date: 20150622
  Transmission Date: 20150821
  Serious: Yes (Life-Threatening)
  Sender: FDA-Public Use
  Company Number: US-009507513-1506USA004279

PATIENT
  Age: 42 Year
  Sex: Male
  Weight: 126.9 kg

DRUGS (3)
  1. CYTARABINE. [Suspect]
     Active Substance: CYTARABINE
     Indication: ACUTE MYELOID LEUKAEMIA
     Dosage: 1500 MG/M2/DAY X 2.68 (BSA) ON DAYS 4-7; CONTINOUS INTRAVENOUS INFUSION
     Route: 042
     Dates: start: 20150519, end: 20150522
  2. VORINOSTAT [Suspect]
     Active Substance: VORINOSTAT
     Indication: ACUTE MYELOID LEUKAEMIA
     Dosage: 500 MG (3X/DAY) ON DAYS 1-3
     Route: 048
     Dates: start: 20150516, end: 20150518
  3. IDARUBICIN [Suspect]
     Active Substance: IDARUBICIN
     Indication: ACUTE MYELOID LEUKAEMIA
     Dosage: 12 MG/M2/DAY ON DAYS 4-6; INTRAVENOUSLY OVER 15 MIN
     Route: 042
     Dates: start: 20150519, end: 20150521

REACTIONS (1)
  - Large intestine perforation [Not Recovered/Not Resolved]

NARRATIVE: CASE EVENT DATE: 20150604
